FAERS Safety Report 8129583-5 (Version None)
Quarter: 2012Q1

REPORT INFORMATION
  Report Type: 
  Country: None (occurrence: None)
  Receive Date: 20120210
  Receipt Date: 20120208
  Transmission Date: 20120608
  Serious: Yes (Other)
  Sender: FDA-Public Use
  Company Number: US-GLAXOSMITHKLINE-A0961210A

PATIENT
  Age: 50 Year
  Sex: Female
  Weight: 77.3 kg

DRUGS (2)
  1. ADVAIR DISKUS 100/50 [Suspect]
     Indication: PRODUCT USED FOR UNKNOWN INDICATION
     Dosage: 1PUFF TWICE PER DAY
     Route: 055
  2. SINGULAIR [Concomitant]
     Dosage: 10MG AT NIGHT

REACTIONS (4)
  - ASTHMA [None]
  - PRODUCT TASTE ABNORMAL [None]
  - PRODUCT QUALITY ISSUE [None]
  - PRODUCT ODOUR ABNORMAL [None]
